FAERS Safety Report 12117969 (Version 3)
Quarter: 2016Q2

REPORT INFORMATION
  Report Type: Spontaneous
  Country: JP (occurrence: JP)
  Receive Date: 20160226
  Receipt Date: 20160520
  Transmission Date: 20160815
  Serious: Yes (Other)
  Sender: FDA-Public Use
  Company Number: JP-AMGEN-JPNSP2016023997

PATIENT
  Age: 10 Decade
  Sex: Male

DRUGS (2)
  1. NESP [Suspect]
     Active Substance: DARBEPOETIN ALFA
     Indication: MYELODYSPLASTIC SYNDROME
     Dosage: 240 MUG, UNK
     Route: 058
  2. NESP [Suspect]
     Active Substance: DARBEPOETIN ALFA
     Dosage: 30-40 MUG, UNK
     Route: 058
     Dates: start: 20160304

REACTIONS (1)
  - Retinal artery occlusion [Recovering/Resolving]
